FAERS Safety Report 6882102-3 (Version None)
Quarter: 2010Q3

REPORT INFORMATION
  Report Type: 
  Country: None (occurrence: None)
  Receive Date: 20100702
  Receipt Date: 20100219
  Transmission Date: 20110219
  Serious: Yes (Other)
  Sender: FDA-Public Use
  Company Number: 2010015473

PATIENT
  Age: 51 Year
  Sex: Female

DRUGS (4)
  1. ZOLOFT [Suspect]
     Dosage: 50 MG, 1X/DAY, ORAL
     Route: 048
     Dates: start: 20091230
  2. GLIBURIDE/METFORMIN HYDROCHLORIDE (GLIBENCLAMIDE, METFORMIN HYDROCHLOR [Concomitant]
  3. DIOVAN HCT [Concomitant]
  4. LIPITOR [Concomitant]

REACTIONS (1)
  - BLOOD GLUCOSE INCREASED [None]
